FAERS Safety Report 23024093 (Version 1)
Quarter: 2023Q4

REPORT INFORMATION
  Report Type: Report from Study
  Country: US (occurrence: US)
  Receive Date: 20231004
  Receipt Date: 20231004
  Transmission Date: 20240110
  Serious: Yes (Hospitalization)
  Sender: FDA-Public Use
  Company Number: US-ABBVIE-5325359

PATIENT
  Age: 57 Year
  Sex: Male
  Weight: 163 kg

DRUGS (2)
  1. SKYRIZI [Suspect]
     Active Substance: RISANKIZUMAB-RZAA
     Indication: Psoriasis
     Route: 058
  2. SKYRIZI [Suspect]
     Active Substance: RISANKIZUMAB-RZAA
     Route: 058

REACTIONS (6)
  - Gait disturbance [Unknown]
  - Inappropriate schedule of product administration [Recovering/Resolving]
  - COVID-19 [Unknown]
  - Illness [Unknown]
  - Urinary tract infection [Unknown]
  - Localised infection [Unknown]

NARRATIVE: CASE EVENT DATE: 20210320
